FAERS Safety Report 15099142 (Version 1)
Quarter: 2018Q3

REPORT INFORMATION
  Report Type: Spontaneous
  Country: US (occurrence: US)
  Receive Date: 20180702
  Receipt Date: 20180702
  Transmission Date: 20181010
  Serious: No
  Sender: FDA-Public Use
  Company Number: US-GALDERMA-US18014316

PATIENT
  Age: 40 Year
  Sex: Female

DRUGS (3)
  1. PROACTIV MD DEEP CLEANSING FACE WASH [Concomitant]
     Active Substance: COSMETICS
     Indication: ACNE
     Route: 061
     Dates: start: 20180227, end: 20180313
  2. PROACTIV DAILY OIL CONTROL [Concomitant]
     Indication: ACNE
     Route: 061
     Dates: start: 20180227, end: 20180313
  3. PROACTIV MD ADAPALENE ACNE TREATMENT [Suspect]
     Active Substance: ADAPALENE
     Indication: ACNE
     Dosage: 0.1%
     Route: 061
     Dates: start: 20180227, end: 20180313

REACTIONS (3)
  - Dry skin [Recovering/Resolving]
  - Skin reaction [Recovering/Resolving]
  - Skin discolouration [Recovering/Resolving]

NARRATIVE: CASE EVENT DATE: 20180303
